FAERS Safety Report 9856611 (Version 1)
Quarter: 2014Q1

REPORT INFORMATION
  Report Type: Spontaneous
  Country: US (occurrence: US)
  Receive Date: 20140130
  Receipt Date: 20140130
  Transmission Date: 20141002
  Serious: Yes (Other)
  Sender: FDA-Public Use
  Company Number: US-ROXANE LABORATORIES, INC.-2014-RO-00102RO

PATIENT
  Age: 28 Year
  Sex: Female

DRUGS (6)
  1. CYCLOPHOSPHAMIDE TABLETS USP [Suspect]
     Indication: INVASIVE DUCTAL BREAST CARCINOMA
  2. DOXORUBICIN [Suspect]
     Indication: BREAST CANCER
  3. PACLITAXEL [Suspect]
     Indication: BREAST CANCER
  4. TAMOXIFEN [Concomitant]
     Indication: BREAST CANCER
  5. ANASTROZOLE [Concomitant]
     Indication: BREAST CANCER
  6. GONADOTROPIN RELEASING HORMONE [Concomitant]
     Indication: BREAST CANCER

REACTIONS (2)
  - Amenorrhoea [Recovered/Resolved]
  - Neoplasm recurrence [Recovered/Resolved]
